FAERS Safety Report 9496578 (Version 2)
Quarter: 2013Q3

REPORT INFORMATION
  Report Type: Spontaneous
  Country: DE (occurrence: DE)
  Receive Date: 20130904
  Receipt Date: 20130916
  Transmission Date: 20140515
  Serious: Yes (Hospitalization, Other)
  Sender: FDA-Public Use
  Company Number: DE-BAYER-2013-105909

PATIENT
  Age: 30 Year
  Sex: Female
  Weight: 82 kg

DRUGS (2)
  1. GADOVIST [Suspect]
     Indication: OSTEOARTHRITIS
     Dosage: UNK
     Route: 042
  2. GADOVIST [Suspect]
     Indication: NUCLEAR MAGNETIC RESONANCE IMAGING

REACTIONS (4)
  - Burning sensation [Recovered/Resolved]
  - Urticaria [Recovered/Resolved]
  - Tremor [Recovered/Resolved]
  - Hypersensitivity [Recovered/Resolved]
